FAERS Safety Report 10477177 (Version 1)
Quarter: 2014Q3

REPORT INFORMATION
  Report Type: Spontaneous
  Country: US (occurrence: US)
  Receive Date: 20140926
  Receipt Date: 20140926
  Transmission Date: 20150326
  Serious: Yes (Other)
  Sender: FDA-Public Use
  Company Number: US-009507513-1409USA012364

PATIENT
  Sex: Female

DRUGS (1)
  1. IMPLANON [Suspect]
     Active Substance: ETONOGESTREL
     Dosage: STRENGTH: 68
     Route: 059

REACTIONS (4)
  - Weight increased [Unknown]
  - Device deployment issue [Recovered/Resolved]
  - Surgery [Recovered/Resolved]
  - Medical device complication [Recovered/Resolved]
